FAERS Safety Report 9806902 (Version 2)
Quarter: 2015Q1

REPORT INFORMATION
  Report Type: Spontaneous
  Country: CA (occurrence: CA)
  Receive Date: 20140109
  Receipt Date: 20150309
  Transmission Date: 20150721
  Serious: Yes (Hospitalization, Other)
  Sender: FDA-Public Use
  Company Number: CA-009507513-1401CAN002499

PATIENT
  Sex: Female

DRUGS (1)
  1. SINGULAIR [Suspect]
     Active Substance: MONTELUKAST SODIUM
     Dosage: FREQUENCY:DAILY, DOSE UNKNOWN
     Route: 048

REACTIONS (3)
  - Arthropathy [Unknown]
  - Kidney infection [Unknown]
  - Kidney infection [Unknown]

NARRATIVE: CASE EVENT DATE: 2014
